FAERS Safety Report 21097283 (Version 1)
Quarter: 2022Q3

REPORT INFORMATION
  Report Type: Spontaneous
  Country: JP (occurrence: JP)
  Receive Date: 20220719
  Receipt Date: 20220719
  Transmission Date: 20221027
  Serious: Yes (Other)
  Sender: FDA-Public Use
  Company Number: JP-SUN PHARMACEUTICAL INDUSTRIES LTD-2022RR-344254

PATIENT
  Age: 74 Year
  Sex: Male

DRUGS (10)
  1. MELPHALAN [Suspect]
     Active Substance: MELPHALAN
     Indication: Myelodysplastic syndrome
     Dosage: EVERY 3 WEEKS
     Route: 065
  2. PREDNISOLONE [Suspect]
     Active Substance: PREDNISOLONE
     Indication: Myelodysplastic syndrome
     Dosage: EVERY 3 WEEKS
     Route: 065
  3. AZACITIDINE [Suspect]
     Active Substance: AZACITIDINE
     Indication: Acute myeloid leukaemia
     Dosage: 75 MICROGRAM/SQ. METER (DAYS 1-7)
     Route: 065
  4. CARBOPLATIN [Suspect]
     Active Substance: CARBOPLATIN
     Indication: Myelodysplastic syndrome
     Dosage: 5 DOSAGE FORM (DAY 4)
  5. VENETOCLAX [Concomitant]
     Active Substance: VENETOCLAX
     Indication: Acute myeloid leukaemia
     Dosage: 400 MG/BODY
     Route: 065
  6. RITUXIMAB [Concomitant]
     Active Substance: RITUXIMAB
     Indication: Product used for unknown indication
     Dosage: 375 MILLIGRAM/SQ. METER, DAY 1
     Route: 065
  7. RITUXIMAB [Concomitant]
     Active Substance: RITUXIMAB
     Dosage: 375 MILLIGRAM/SQ. METER, 13 TIMES FOR 2 YEARS
     Route: 065
  8. IFOSFAMIDE [Concomitant]
     Active Substance: IFOSFAMIDE
     Indication: Product used for unknown indication
     Dosage: 1.7 GRAM PER SQUARE METRE, DAY 2-3
     Route: 065
  9. IFOSFAMIDE [Concomitant]
     Active Substance: IFOSFAMIDE
     Dosage: 1.6 GRAM PER SQUARE METRE, DAY 4
     Route: 065
  10. ETOPOSIDE [Concomitant]
     Active Substance: ETOPOSIDE
     Indication: Product used for unknown indication
     Dosage: 100 MILLIGRAM/SQ. METER, DAYS 2-4, 3 CYCLES
     Route: 065

REACTIONS (5)
  - Therapy partial responder [Unknown]
  - Hyperuricaemia [Unknown]
  - Hyperphosphataemia [Unknown]
  - Tumour lysis syndrome [Unknown]
  - Therapeutic product effect incomplete [Unknown]
